FAERS Safety Report 9925261 (Version 1)
Quarter: 2014Q1

REPORT INFORMATION
  Report Type: Spontaneous
  Country: US (occurrence: US)
  Receive Date: 20140226
  Receipt Date: 20140226
  Transmission Date: 20141002
  Serious: Yes (Other)
  Sender: FDA-Public Use
  Company Number: US-BRACCO-010206

PATIENT
  Age: 88 Year
  Sex: Male

DRUGS (1)
  1. ISOVUE 300 [Suspect]
     Indication: COMPUTERISED TOMOGRAM
     Route: 042
     Dates: start: 20131106, end: 20131106

REACTIONS (1)
  - Anaphylactic reaction [Recovered/Resolved]
